FAERS Safety Report 20747073 (Version 6)
Quarter: 2023Q1

REPORT INFORMATION
  Report Type: Spontaneous
  Country: US (occurrence: US)
  Receive Date: 20220425
  Receipt Date: 20230323
  Transmission Date: 20230417
  Serious: No
  Sender: FDA-Public Use
  Company Number: US-PFIZER INC-202200321854

PATIENT
  Age: 72 Year
  Sex: Female
  Weight: 72.12 kg

DRUGS (3)
  1. IBRANCE [Suspect]
     Active Substance: PALBOCICLIB
     Indication: Breast cancer metastatic
     Dosage: 125 MG
     Dates: start: 20210524
  2. IBRANCE [Suspect]
     Active Substance: PALBOCICLIB
     Dosage: GLASS OF WATER THREE WEEKS AND OFF A WEEK
     Dates: start: 202105
  3. IBRANCE [Suspect]
     Active Substance: PALBOCICLIB
     Dosage: 75 MG

REACTIONS (3)
  - Neoplasm progression [Unknown]
  - Product dispensing error [Unknown]
  - Peripheral swelling [Unknown]

NARRATIVE: CASE EVENT DATE: 20210524
